FAERS Safety Report 7082482-2 (Version None)
Quarter: 2010Q3

REPORT INFORMATION
  Report Type: 
  Country: None (occurrence: None)
  Receive Date: 20100929
  Receipt Date: 20100618
  Transmission Date: 20110219
  Serious: No
  Sender: FDA-Public Use
  Company Number: US-WYE-H15775110

PATIENT
  Age: 53 Year
  Sex: Female
  Weight: 48.12 kg

DRUGS (2)
  1. PRISTIQ [Suspect]
     Indication: DEPRESSION
     Dosage: 50 MG 1X PER 1 DAY, ORAL
     Route: 048
     Dates: start: 20100614, end: 20100617
  2. SYNTHROID [Concomitant]

REACTIONS (4)
  - FEELING ABNORMAL [None]
  - HEART RATE INCREASED [None]
  - HYPERSOMNIA [None]
  - INTENTIONAL DRUG MISUSE [None]
